FAERS Safety Report 19508362 (Version 1)
Quarter: 2021Q3

REPORT INFORMATION
  Report Type: Spontaneous
  Country: DE (occurrence: DE)
  Receive Date: 20210708
  Receipt Date: 20210708
  Transmission Date: 20211014
  Serious: Yes (Hospitalization, Other)
  Sender: FDA-Public Use
  Company Number: DE-PFIZER INC-2021780115

PATIENT
  Age: 61 Year
  Sex: Male
  Weight: 67 kg

DRUGS (3)
  1. ATORVASTATIN CALCIUM. [Suspect]
     Active Substance: ATORVASTATIN CALCIUM
     Dosage: 80 MG, 0?0?1?0, TABLETS
     Route: 048
  2. IRBEPRESS [Concomitant]
     Dosage: 150 MG, 1?0?0?0, TABLETS
     Route: 048
  3. ACETYLSALICYLSAEURE [Suspect]
     Active Substance: ASPIRIN
     Dosage: 100 MG, 1?0?0?0, TABLETS
     Route: 048

REACTIONS (3)
  - Carotid artery stenosis [Unknown]
  - Vision blurred [Unknown]
  - Visual impairment [Unknown]
